FAERS Safety Report 20618351 (Version 2)
Quarter: 2022Q2

REPORT INFORMATION
  Report Type: Report from Study
  Country: FR (occurrence: None)
  Receive Date: 20220321
  Receipt Date: 20220415
  Transmission Date: 20220721
  Serious: Yes (Hospitalization)
  Sender: FDA-Public Use
  Company Number: FR-ROCHE-3047886

PATIENT
  Age: 56 Year
  Sex: Female
  Weight: 43 kg

DRUGS (6)
  1. BEVACIZUMAB [Suspect]
     Active Substance: BEVACIZUMAB
     Indication: Cervix carcinoma
     Dosage: DATE OF LAST ADMINISTRATION: 22/FEB/2022
     Route: 042
     Dates: start: 20210323
  2. PACLITAXEL [Suspect]
     Active Substance: PACLITAXEL
     Indication: Cervix carcinoma
     Dosage: DATE OF LAST ADMINISTRATION: 23/MAR/2021
     Route: 042
     Dates: start: 20210323
  3. CARBOPLATIN [Suspect]
     Active Substance: CARBOPLATIN
     Indication: Cervix carcinoma
     Dosage: AUC 4?DATE OF LAST ADMINISTRATION: 30/JUN/2021
     Route: 042
     Dates: start: 20210323
  4. TRAMADOL [Concomitant]
     Active Substance: TRAMADOL
     Route: 048
  5. ACETAMINOPHEN [Concomitant]
     Active Substance: ACETAMINOPHEN
     Route: 048
  6. PHLOROGLUCINOL [Concomitant]
     Active Substance: PHLOROGLUCINOL
     Route: 048
     Dates: start: 20210908

REACTIONS (1)
  - Subileus [Recovered/Resolved]

NARRATIVE: CASE EVENT DATE: 20220302
